FAERS Safety Report 21766901 (Version 1)
Quarter: 2022Q4

REPORT INFORMATION
  Report Type: Spontaneous
  Country: US (occurrence: US)
  Receive Date: 20221222
  Receipt Date: 20221222
  Transmission Date: 20230112
  Serious: Yes (Hospitalization, Other)
  Sender: FDA-Public Use
  Company Number: US-ORG100016242-2022002945

PATIENT
  Sex: Female

DRUGS (1)
  1. EXPAREL [Suspect]
     Active Substance: BUPIVACAINE
     Indication: Vaginal prolapse repair

REACTIONS (11)
  - Procedural complication [Unknown]
  - Ileus [Unknown]
  - Pulmonary embolism [Unknown]
  - Hospitalisation [Unknown]
  - Small intestinal obstruction [Unknown]
  - Transfusion [Unknown]
  - Urinary retention [Unknown]
  - Cellulitis [Unknown]
  - Urinary tract infection [Unknown]
  - Complication associated with device [Unknown]
  - Urinary incontinence [Unknown]
